FAERS Safety Report 10640786 (Version 1)
Quarter: 2014Q4

REPORT INFORMATION
  Report Type: Spontaneous
  Country: US (occurrence: US)
  Receive Date: 20141209
  Receipt Date: 20141209
  Transmission Date: 20150529
  Serious: Yes (Other)
  Sender: FDA-Public Use
  Company Number: US-ASTRAZENECA-2014SE92777

PATIENT
  Age: 44 Year
  Sex: Female
  Weight: 89.8 kg

DRUGS (5)
  1. CARBAMAZEPINE. [Suspect]
     Active Substance: CARBAMAZEPINE
     Dosage: TARO
     Route: 065
     Dates: start: 2000
  2. CARBAMAZEPINE. [Suspect]
     Active Substance: CARBAMAZEPINE
     Route: 065
     Dates: start: 201409
  3. CRESTOR [Suspect]
     Active Substance: ROSUVASTATIN CALCIUM
     Route: 048
     Dates: start: 2011
  4. LISINOPRIL. [Suspect]
     Active Substance: LISINOPRIL
     Route: 048
     Dates: start: 2011, end: 20141118
  5. DEXILANT [Suspect]
     Active Substance: DEXLANSOPRAZOLE
     Route: 065
     Dates: start: 201404, end: 20141116

REACTIONS (11)
  - Chest discomfort [Recovering/Resolving]
  - Hearing impaired [Recovering/Resolving]
  - Drug hypersensitivity [Recovering/Resolving]
  - Myocardial infarction [Unknown]
  - Nasal congestion [Recovering/Resolving]
  - Tension headache [Recovering/Resolving]
  - Oedema peripheral [Recovering/Resolving]
  - Metamorphopsia [Recovering/Resolving]
  - Respiratory tract congestion [Recovering/Resolving]
  - Vision blurred [Not Recovered/Not Resolved]
  - Rash [Recovering/Resolving]

NARRATIVE: CASE EVENT DATE: 2011
